FAERS Safety Report 6096238-0 (Version None)
Quarter: 2009Q1

REPORT INFORMATION
  Report Type: 
  Country: None (occurrence: None)
  Receive Date: 20090227
  Receipt Date: 20081014
  Transmission Date: 20090719
  Serious: No
  Sender: FDA-Public Use
  Company Number: A0751796A

PATIENT
  Age: 26 Year
  Sex: Female

DRUGS (3)
  1. LAMICTAL [Suspect]
     Indication: BIPOLAR DISORDER
     Dosage: 400MG PER DAY
     Route: 048
     Dates: start: 20080301
  2. ADDERALL 10 [Concomitant]
  3. BUSPAR [Concomitant]

REACTIONS (1)
  - DENTAL CARIES [None]
